FAERS Safety Report 10299268 (Version 1)
Quarter: 2014Q3

REPORT INFORMATION
  Report Type: Spontaneous
  Country: GB (occurrence: GB)
  Receive Date: 20140711
  Receipt Date: 20140711
  Transmission Date: 20150326
  Serious: Yes (Hospitalization, Other)
  Sender: FDA-Public Use
  Company Number: GB-WATSON-2014-14818

PATIENT
  Age: 52 Year
  Sex: Male
  Weight: 68 kg

DRUGS (3)
  1. ANTABUSE [Suspect]
     Active Substance: DISULFIRAM
     Indication: ALCOHOL ABUSE
     Dosage: UNK.
     Route: 048
     Dates: start: 20140615, end: 20140618
  2. THIAMINE [Concomitant]
     Active Substance: THIAMINE
     Indication: PRODUCT USED FOR UNKNOWN INDICATION
     Dosage: UNK
     Route: 065
  3. VITAMIN B COMPOUND                 /00212701/ [Concomitant]
     Indication: PRODUCT USED FOR UNKNOWN INDICATION
     Dosage: UNK
     Route: 065

REACTIONS (1)
  - Chest pain [Recovered/Resolved]

NARRATIVE: CASE EVENT DATE: 20140616
